FAERS Safety Report 6315518-4 (Version None)
Quarter: 2009Q3

REPORT INFORMATION
  Report Type: 
  Country: None (occurrence: None)
  Receive Date: 20090819
  Receipt Date: 20090806
  Transmission Date: 20100115
  Serious: Yes (Other)
  Sender: FDA-Public Use
  Company Number: US-PFIZER INC-2009243604

PATIENT
  Sex: Female
  Weight: 38.549 kg

DRUGS (2)
  1. CHANTIX [Suspect]
     Indication: SMOKING CESSATION THERAPY
     Dosage: 1 MG, 2X/DAY
     Route: 048
     Dates: start: 20081202, end: 20090101
  2. LEXAPRO [Concomitant]
     Indication: DEPRESSION
     Dosage: 15 MG, 1X/DAY
     Dates: start: 20040101

REACTIONS (3)
  - ABNORMAL BEHAVIOUR [None]
  - AFFECT LABILITY [None]
  - SUICIDAL IDEATION [None]
